FAERS Safety Report 9804299 (Version 3)
Quarter: 2014Q2

REPORT INFORMATION
  Report Type: Spontaneous
  Country: BR (occurrence: BR)
  Receive Date: 20140108
  Receipt Date: 20140524
  Transmission Date: 20141212
  Serious: Yes (Other)
  Sender: FDA-Public Use
  Company Number: BR-AMGEN-BRASP2013089125

PATIENT
  Age: 60 Year
  Sex: Female
  Weight: 75 kg

DRUGS (6)
  1. ENBREL [Suspect]
     Indication: RHEUMATOID ARTHRITIS
     Dosage: 50 MG, WEEKLY
     Route: 058
  2. METFORMIN [Concomitant]
     Indication: DIABETES MELLITUS
     Dosage: 1700 MG (2 TABLETS OF 850MG), DAILY
  3. BENICAR [Concomitant]
     Indication: HYPERTENSION
     Dosage: 1 TABLET OF 40 MG, DAILY
  4. ATENOLOL [Concomitant]
     Indication: HYPERTENSION
     Dosage: 1 TABLET OF 25 MG, DAILY
  5. ALDACTONE                          /00006201/ [Concomitant]
     Indication: HYPERTENSION
     Dosage: 1 TABLET OF 25 MG, DAILY
  6. METHOTREXATE [Concomitant]
     Dosage: 8 DF, WEEKLY

REACTIONS (3)
  - Cough [Not Recovered/Not Resolved]
  - Pneumonia [Unknown]
  - Nasopharyngitis [Unknown]
